FAERS Safety Report 9202214 (Version 1)
Quarter: 2013Q2

REPORT INFORMATION
  Report Type: Spontaneous
  Country: GB (occurrence: GB)
  Receive Date: 20130401
  Receipt Date: 20130401
  Transmission Date: 20140414
  Serious: Yes (Death)
  Sender: FDA-Public Use
  Company Number: GB-ABBOTT-13P-167-1069795-00

PATIENT
  Age: 71 Year
  Sex: Female
  Weight: 90 kg

DRUGS (11)
  1. HUMIRA [Suspect]
     Indication: RHEUMATOID ARTHRITIS
     Route: 058
     Dates: start: 200803, end: 201006
  2. MABTHERA [Suspect]
     Indication: RHEUMATOID ARTHRITIS
     Dosage: 2 1000MG INFUSIONS 2 WEEKS APART
     Dates: start: 20120229, end: 20120314
  3. ENBREL [Suspect]
     Indication: RHEUMATOID ARTHRITIS
     Route: 058
     Dates: start: 201008, end: 201108
  4. METHOTREXATE [Suspect]
     Indication: RHEUMATOID ARTHRITIS
     Route: 048
     Dates: start: 2007, end: 201301
  5. RAMIPRIL [Concomitant]
     Indication: HYPERTENSION
     Dosage: LONG TERM
     Route: 048
     Dates: start: 2007, end: 201302
  6. PREDNISOLONE [Concomitant]
     Indication: RHEUMATOID ARTHRITIS
     Dosage: LONG TERM
     Route: 048
     Dates: start: 2007, end: 201302
  7. LEVOTHYROXINE [Concomitant]
     Indication: HYPOTHYROIDISM
     Dosage: LONG TERM
     Route: 048
     Dates: start: 2007, end: 201302
  8. OMEPRAZOLE [Concomitant]
     Indication: GASTROOESOPHAGEAL REFLUX DISEASE
     Dosage: LONG TERM
     Route: 048
     Dates: start: 2007, end: 201302
  9. ADCAL-D3 [Concomitant]
     Indication: VITAMIN D DECREASED
     Dosage: LONG TERM
     Route: 048
     Dates: start: 2007, end: 201302
  10. ASPIRIN [Concomitant]
     Indication: PRODUCT USED FOR UNKNOWN INDICATION
     Dosage: LONG TERM
     Route: 048
     Dates: start: 2007, end: 201302
  11. CO-DYDRAMOL [Concomitant]
     Indication: PRODUCT USED FOR UNKNOWN INDICATION
     Dosage: LONG TERM
     Route: 048
     Dates: start: 2007, end: 201302

REACTIONS (1)
  - Malignant neoplasm of unknown primary site [Fatal]
